FAERS Safety Report 18557838 (Version 1)
Quarter: 2020Q4

REPORT INFORMATION
  Report Type: Spontaneous
  Country: US (occurrence: US)
  Receive Date: 20201130
  Receipt Date: 20201130
  Transmission Date: 20210114
  Serious: No
  Sender: FDA-Public Use
  Company Number: US-JNJFOC-20201148470

PATIENT
  Age: 9 Decade
  Sex: Male

DRUGS (2)
  1. ZYTIGA [Suspect]
     Active Substance: ABIRATERONE ACETATE
     Indication: PRODUCT USED FOR UNKNOWN INDICATION
     Route: 048
     Dates: start: 20191219
  2. ZYTIGA [Suspect]
     Active Substance: ABIRATERONE ACETATE
     Route: 048

REACTIONS (2)
  - Off label use [Unknown]
  - Adverse drug reaction [Recovered/Resolved]
